FAERS Safety Report 8522747-8 (Version None)
Quarter: 2012Q3

REPORT INFORMATION
  Report Type: 
  Country: None (occurrence: None)
  Receive Date: 20120719
  Receipt Date: 20120717
  Transmission Date: 20120928
  Serious: Yes (Death, Hospitalization)
  Sender: FDA-Public Use
  Company Number: US-FRI-1000036932

PATIENT
  Age: 62 Year
  Sex: Male

DRUGS (11)
  1. PROAIR HFA [Concomitant]
     Indication: CHRONIC OBSTRUCTIVE PULMONARY DISEASE
  2. CRESTOR [Concomitant]
     Indication: BLOOD CHOLESTEROL INCREASED
  3. SYMBICORT [Concomitant]
     Indication: CHRONIC OBSTRUCTIVE PULMONARY DISEASE
  4. ADVAIR DISKUS 100/50 [Concomitant]
  5. LEVAQUIN [Concomitant]
     Dosage: 500 MG
  6. SPIRIVA [Concomitant]
     Indication: CHRONIC OBSTRUCTIVE PULMONARY DISEASE
  7. SOLU-MEDROL [Concomitant]
  8. DALIRESP [Suspect]
     Indication: CHRONIC OBSTRUCTIVE PULMONARY DISEASE
     Dosage: 500 MCG
     Route: 048
     Dates: start: 20120510, end: 20120626
  9. LEXAPRO [Concomitant]
     Indication: DEPRESSION
  10. FLOMAX [Concomitant]
  11. XYZAL [Concomitant]
     Indication: SEASONAL ALLERGY

REACTIONS (8)
  - CHRONIC OBSTRUCTIVE PULMONARY DISEASE [None]
  - HEADACHE [None]
  - PANIC ATTACK [None]
  - RESPIRATORY FAILURE [None]
  - ANXIETY [None]
  - INSOMNIA [None]
  - TREMOR [None]
  - DIZZINESS [None]
